FAERS Safety Report 4845364-X (Version None)
Quarter: 2005Q4

REPORT INFORMATION
  Report Type: 
  Country: None (occurrence: None)
  Receive Date: 20051205
  Receipt Date: 20051204
  Transmission Date: 20060501
  Serious: Yes (Other)
  Sender: FDA-Public Use
  Company Number: 2005023874

PATIENT
  Age: 55 Year
  Sex: Female
  Weight: 50 kg

DRUGS (3)
  1. TAGONIS [Suspect]
     Dosage: 5TAB SINGLE DOSE
     Route: 048
  2. OPTIDORM [Suspect]
     Dosage: 10TAB SINGLE DOSE
     Route: 048
  3. STILNOX [Suspect]
     Dosage: 120TAB SINGLE DOSE
     Route: 048

REACTIONS (3)
  - INTENTIONAL OVERDOSE [None]
  - SOMNOLENCE [None]
  - SUICIDE ATTEMPT [None]
